FAERS Safety Report 22150830 (Version 1)
Quarter: 2023Q1

REPORT INFORMATION
  Report Type: Spontaneous
  Country: US (occurrence: US)
  Receive Date: 20230329
  Receipt Date: 20230329
  Transmission Date: 20230418
  Serious: No
  Sender: FDA-Public Use
  Company Number: US-SA-2023SA097434

PATIENT
  Age: 31 Year
  Sex: Female

DRUGS (4)
  1. CABLIVI [Suspect]
     Active Substance: CAPLACIZUMAB-YHDP
     Indication: Thrombocytopenia
     Dosage: 11 MG, QD
     Route: 058
     Dates: start: 20230131
  2. CABLIVI [Suspect]
     Active Substance: CAPLACIZUMAB-YHDP
     Indication: Thrombocytopenia
     Dosage: 11 MG, QD
     Route: 058
     Dates: start: 20230131
  3. CABLIVI [Suspect]
     Active Substance: CAPLACIZUMAB-YHDP
     Indication: Thrombocytopenia
     Dosage: 11 MG, QD
     Route: 058
     Dates: start: 20230131
  4. CABLIVI [Suspect]
     Active Substance: CAPLACIZUMAB-YHDP
     Indication: Thrombocytopenia
     Dosage: 11 MG, QD
     Route: 058
     Dates: start: 20230131

REACTIONS (3)
  - Contusion [Unknown]
  - Headache [Unknown]
  - Product use in unapproved indication [Unknown]

NARRATIVE: CASE EVENT DATE: 20230101
